FAERS Safety Report 11841097 (Version 1)
Quarter: 2015Q4

REPORT INFORMATION
  Report Type: Spontaneous
  Country: BR (occurrence: BR)
  Receive Date: 20151216
  Receipt Date: 20151216
  Transmission Date: 20160305
  Serious: Yes (Hospitalization, Other)
  Sender: FDA-Public Use
  Company Number: BR-JNJFOC-20151208621

PATIENT
  Age: 48 Year
  Sex: Male

DRUGS (2)
  1. RISPERIDONE. [Suspect]
     Active Substance: RISPERIDONE
     Indication: COGNITIVE DISORDER
     Route: 065
  2. RISPERIDONE. [Suspect]
     Active Substance: RISPERIDONE
     Indication: AFFECT LABILITY
     Route: 065

REACTIONS (4)
  - Product use issue [Unknown]
  - Venous thrombosis [Unknown]
  - Off label use [Unknown]
  - Meningioma [Unknown]
